FAERS Safety Report 7931198-6 (Version None)
Quarter: 2011Q4

REPORT INFORMATION
  Report Type: 
  Country: None (occurrence: None)
  Receive Date: 20111121
  Receipt Date: 20111110
  Transmission Date: 20120403
  Serious: Yes (Hospitalization, Other)
  Sender: FDA-Public Use
  Company Number: US-BAYER-2011-091935

PATIENT
  Age: 22 Year
  Sex: Female
  Weight: 61 kg

DRUGS (3)
  1. YAZ [Suspect]
     Indication: CONTRACEPTION
     Dosage: UNK
     Dates: start: 20060101, end: 20081201
  2. YAZ [Suspect]
  3. YAZ [Suspect]
     Indication: PREMENSTRUAL SYNDROME

REACTIONS (2)
  - CHOLECYSTECTOMY [None]
  - CHOLECYSTITIS CHRONIC [None]
